FAERS Safety Report 5334835-8 (Version None)
Quarter: 2007Q2

REPORT INFORMATION
  Report Type: 
  Country: None (occurrence: None)
  Receive Date: 20070525
  Receipt Date: 20070514
  Transmission Date: 20071010
  Serious: Yes (Other)
  Sender: FDA-Public Use
  Company Number: US-ELI_LILLY_AND_COMPANY-USA0508106485

PATIENT
  Age: 63 Year
  Sex: Male

DRUGS (2)
  1. CIALIS [Suspect]
     Indication: ERECTILE DYSFUNCTION
     Dosage: 5 MG, UNK
  2. CIALIS [Suspect]
     Dosage: 10 MG, AS NEEDED

REACTIONS (2)
  - RETINAL DETACHMENT [None]
  - RETINAL HAEMORRHAGE [None]
